FAERS Safety Report 6525635-1 (Version None)
Quarter: 2009Q4

REPORT INFORMATION
  Report Type: 
  Country: None (occurrence: None)
  Receive Date: 20091228
  Receipt Date: 20091210
  Transmission Date: 20100525
  Serious: Yes (Hospitalization)
  Sender: FDA-Public Use
  Company Number: 002795

PATIENT
  Sex: Male

DRUGS (7)
  1. VIMPAT [Suspect]
     Indication: EPILEPSY
     Dosage: 100 MG BID ORAL
     Route: 048
     Dates: start: 20090714
  2. BLOPRESS [Concomitant]
  3. DOXAGAMMA [Concomitant]
  4. AMLODIPINE [Concomitant]
  5. RIFUN [Concomitant]
  6. ARAVA [Concomitant]
  7. FENTANYL-100 [Concomitant]

REACTIONS (2)
  - BUNDLE BRANCH BLOCK LEFT [None]
  - CONVULSION [None]
